FAERS Safety Report 19244982 (Version 1)
Quarter: 2021Q2

REPORT INFORMATION
  Report Type: Spontaneous
  Country: US (occurrence: US)
  Receive Date: 20210512
  Receipt Date: 20210512
  Transmission Date: 20210717
  Serious: No
  Sender: FDA-Public Use
  Company Number: US-SA-2021SA155584

PATIENT
  Sex: Female

DRUGS (8)
  1. LEVOFLOXACIN. [Concomitant]
     Active Substance: LEVOFLOXACIN
  2. WELCHOL [Concomitant]
     Active Substance: COLESEVELAM HYDROCHLORIDE
  3. LISINOPRIL. [Concomitant]
     Active Substance: LISINOPRIL
  4. AMOXICILLIN. [Concomitant]
     Active Substance: AMOXICILLIN
  5. LEVOTHYROXIN [Concomitant]
     Active Substance: LEVOTHYROXINE
  6. NORCO [Concomitant]
     Active Substance: ACETAMINOPHEN\HYDROCODONE BITARTRATE
  7. DUPIXENT [Suspect]
     Active Substance: DUPILUMAB
     Indication: SINUS DISORDER
     Route: 058
  8. DUPIXENT [Suspect]
     Active Substance: DUPILUMAB
     Indication: NASAL DISORDER

REACTIONS (5)
  - Hand dermatitis [Recovered/Resolved]
  - Lacrimation increased [Not Recovered/Not Resolved]
  - Joint stiffness [Not Recovered/Not Resolved]
  - Arthritis [Not Recovered/Not Resolved]
  - Product use in unapproved indication [Unknown]
